FAERS Safety Report 9995161 (Version 1)
Quarter: 2014Q1

REPORT INFORMATION
  Report Type: Spontaneous
  Country: US (occurrence: None)
  Receive Date: 20140307
  Receipt Date: 20140307
  Transmission Date: 20141002
  Serious: Yes (Life-Threatening)
  Sender: FDA-Public Use
  Company Number: None

PATIENT
  Sex: Male

DRUGS (7)
  1. HALDOL [Suspect]
     Indication: SEDATION
     Dosage: BY MOUTH, INVOLUNTARY INJECTION, OR AT BEDTIME, 2 PUFFS
  2. SEROQUEL [Suspect]
  3. ZYPREXA [Concomitant]
  4. BENADRYL [Concomitant]
  5. THORAZINE [Concomitant]
  6. HYDROXYZINE [Concomitant]
  7. VITAMINS [Concomitant]

REACTIONS (5)
  - Choking [None]
  - Coma [None]
  - Loss of consciousness [None]
  - Fatigue [None]
  - Somnolence [None]
